FAERS Safety Report 6840173-4 (Version None)
Quarter: 2010Q3

REPORT INFORMATION
  Report Type: 
  Country: None (occurrence: None)
  Receive Date: 20100709
  Receipt Date: 20100630
  Transmission Date: 20110219
  Serious: Yes (Death, Other)
  Sender: FDA-Public Use
  Company Number: IPC201007-000178

PATIENT
  Age: 57 Year
  Sex: Female

DRUGS (4)
  1. ATENOLOL [Suspect]
     Indication: SUPRAVENTRICULAR EXTRASYSTOLES
  2. TRASTUZUMAB [Suspect]
  3. TAMOXIFEN [Suspect]
  4. PERINDOPRIL [Suspect]
     Dosage: 5 MG PER DAY

REACTIONS (12)
  - ARRHYTHMIA [None]
  - BREAST CANCER STAGE II [None]
  - CARDIAC DISORDER [None]
  - DEATH OF COMPANION [None]
  - DEPRESSION [None]
  - DRUG TOXICITY [None]
  - LEFT ATRIAL DILATATION [None]
  - LEFT VENTRICULAR DYSFUNCTION [None]
  - LEFT VENTRICULAR HYPERTROPHY [None]
  - LYMPHOCYTIC INFILTRATION [None]
  - MITRAL VALVE PROLAPSE [None]
  - PULMONARY CONGESTION [None]
